FAERS Safety Report 8575330 (Version 8)
Quarter: 2012Q4

REPORT INFORMATION
  Report Type: Report from Study
  Country: CA (occurrence: CA)
  Receive Date: 20120523
  Receipt Date: 20121126
  Transmission Date: 20130627
  Serious: Yes (Hospitalization, Other)
  Sender: FDA-Public Use
  Company Number: CA-SANOFI-AVENTIS-2012SA034376

PATIENT
  Age: 72 Year
  Sex: Male
  Weight: 65.4 kg

DRUGS (14)
  1. CABAZITAXEL [Suspect]
     Indication: PROSTATE CANCER
     Route: 041
     Dates: start: 20111124, end: 20111124
  2. CABAZITAXEL [Suspect]
     Indication: PROSTATE CANCER
     Route: 041
     Dates: start: 20120426, end: 20120426
  3. PREDNISONE [Suspect]
     Indication: PROSTATE CANCER
     Route: 048
     Dates: start: 20111124, end: 20120508
  4. COUMADIN [Concomitant]
     Indication: ATRIAL FIBRILLATION
     Dosage: dose per INR
     Route: 048
     Dates: start: 20100112
  5. ANTACIDS [Concomitant]
     Indication: OSTEOPOROSIS PROPHYLAXIS
     Route: 048
     Dates: start: 20100223
  6. FUROSEMIDE [Concomitant]
     Indication: CARDIOVASCULAR EVENT PROPHYLAXIS
     Route: 048
     Dates: start: 20091228
  7. ATORVASTATIN [Concomitant]
     Indication: HYPERCHOLESTEROLEMIA
     Route: 048
     Dates: start: 20100708
  8. MICARDIS PLUS [Concomitant]
     Indication: HYPERTENSION
     Dosage: 80/12.5 mg
     Route: 048
     Dates: start: 20091215
  9. AMIODARONE [Concomitant]
     Indication: CARDIAC ARRHYTHMIA
     Route: 048
     Dates: start: 20091211
  10. BISOPROLOL [Concomitant]
     Indication: HYPERTENSION
     Route: 048
     Dates: start: 20091211
  11. ZOLADEX LA [Concomitant]
     Indication: PROSTATE CANCER
     Route: 058
     Dates: start: 20110731
  12. ACETAMINOPHEN [Concomitant]
     Route: 048
     Dates: start: 2011
  13. HYDROMORPHONE [Concomitant]
     Route: 048
     Dates: start: 20111102
  14. AMLODIPINE [Concomitant]
     Indication: HYPERTENSION
     Route: 048
     Dates: start: 20100218

REACTIONS (1)
  - Colitis ischaemic [Recovered/Resolved]
